FAERS Safety Report 19568452 (Version 1)
Quarter: 2021Q3

REPORT INFORMATION
  Report Type: Spontaneous
  Country: GB (occurrence: GB)
  Receive Date: 20210716
  Receipt Date: 20210716
  Transmission Date: 20211014
  Serious: Yes (Other)
  Sender: FDA-Public Use
  Company Number: GB-HIKMA PHARMACEUTICALS USA INC.-GB-H14001-21-54878

PATIENT
  Age: 59 Year
  Sex: Female

DRUGS (3)
  1. ACYCLOVIR. [Suspect]
     Active Substance: ACYCLOVIR
     Indication: PRODUCT USED FOR UNKNOWN INDICATION
     Dosage: UNKNOWN
     Route: 065
  2. ASTRAZENECA COVID?19 VACCINE [Suspect]
     Active Substance: AZD-1222
     Dosage: DOSE TWO
     Route: 065
     Dates: start: 20210531
  3. ASTRAZENECA COVID?19 VACCINE [Suspect]
     Active Substance: AZD-1222
     Indication: COVID-19 PROPHYLAXIS
     Dosage: DOSE ONE
     Route: 065

REACTIONS (11)
  - Rash [Recovering/Resolving]
  - Hypoaesthesia [Unknown]
  - Herpes zoster [Recovering/Resolving]
  - Oral herpes [Unknown]
  - Rash macular [Unknown]
  - Sitting disability [Unknown]
  - Paraesthesia oral [Unknown]
  - Scab [Unknown]
  - Contusion [Unknown]
  - Fatigue [Recovering/Resolving]
  - Pain [Unknown]

NARRATIVE: CASE EVENT DATE: 20210609
